FAERS Safety Report 12936454 (Version 1)
Quarter: 2016Q4

REPORT INFORMATION
  Report Type: Spontaneous
  Country: IN (occurrence: US)
  Receive Date: 20161113
  Receipt Date: 20161113
  Transmission Date: 20170207
  Serious: Yes (Life-Threatening, Disabling)
  Sender: FDA-Public Use
  Company Number: None

PATIENT
  Age: 25 Year
  Sex: Male
  Weight: 70 kg

DRUGS (1)
  1. PAROXETINE. [Suspect]
     Active Substance: PAROXETINE
     Indication: BIPOLAR DISORDER

REACTIONS (10)
  - Personality disorder [None]
  - Emotional disorder [None]
  - Exostosis [None]
  - Anger [None]
  - Libido decreased [None]
  - Sensitivity of teeth [None]
  - Hyperhidrosis [None]
  - Aggression [None]
  - Palpitations [None]
  - Neuropathy peripheral [None]

NARRATIVE: CASE EVENT DATE: 20151002
